FAERS Safety Report 20439936 (Version 1)
Quarter: 2022Q1

REPORT INFORMATION
  Report Type: Report from Study
  Country: DE (occurrence: DE)
  Receive Date: 20220207
  Receipt Date: 20220207
  Transmission Date: 20220423
  Serious: Yes (Death, Other)
  Sender: FDA-Public Use
  Company Number: DE-IPSEN Group, Research and Development-2022-02813

PATIENT

DRUGS (4)
  1. IRINOTECAN HYDROCHLORIDE [Suspect]
     Active Substance: IRINOTECAN HYDROCHLORIDE
     Indication: Cholangiocarcinoma
     Dosage: 70 MG/M2, OVER THE COURSE OF 46 H EVERY 2 WEEKS (23)
     Route: 065
  2. IRINOTECAN HYDROCHLORIDE [Suspect]
     Active Substance: IRINOTECAN HYDROCHLORIDE
     Indication: Off label use
  3. LEUCOVORIN [Suspect]
     Active Substance: LEUCOVORIN
     Indication: Cholangiocarcinoma
     Dosage: OVER THE COURSE OF 46 H EVERY 2 WEEKS (23)
     Route: 065
  4. FLUOROURACIL [Suspect]
     Active Substance: FLUOROURACIL
     Indication: Cholangiocarcinoma
     Dosage: OVER THE COURSE OF 46 H EVERY 2 WEEKS (23)
     Route: 065

REACTIONS (5)
  - Death [Fatal]
  - Disease progression [Unknown]
  - Toxicity to various agents [Unknown]
  - Diarrhoea [Unknown]
  - Off label use [Unknown]
